FAERS Safety Report 9845471 (Version 1)
Quarter: 2014Q1

REPORT INFORMATION
  Report Type: Spontaneous
  Country: US (occurrence: None)
  Receive Date: 20140122
  Receipt Date: 20140122
  Transmission Date: 20141002
  Serious: Yes (Death)
  Sender: FDA-Public Use
  Company Number: POI0573201400006

PATIENT
  Age: 11 Month
  Sex: Male

DRUGS (1)
  1. NIFEDIPINE EXTENDED-RELEASE TABLETS USP 30MG, 60MG, AND 90MG (NIFEDIPINE) (10 MILLIGRAM, TABLET) [Suspect]
     Dosage: 60 TABLETS, ONCE
     Route: 048
     Dates: start: 2012, end: 2012

REACTIONS (6)
  - Cardiac arrest [None]
  - Respiratory arrest [None]
  - Toxicity to various agents [None]
  - Unresponsive to stimuli [None]
  - Heart rate decreased [None]
  - Accidental exposure to product by child [None]
